FAERS Safety Report 7984308-9 (Version None)
Quarter: 2011Q4

REPORT INFORMATION
  Report Type: 
  Country: None (occurrence: None)
  Receive Date: 20111214
  Receipt Date: 20111210
  Transmission Date: 20120403
  Serious: Yes (Hospitalization, Other)
  Sender: FDA-Public Use
  Company Number: 127477

PATIENT
  Age: 15 Month
  Sex: Male

DRUGS (1)
  1. ONDANSETRON [Suspect]

REACTIONS (10)
  - MENTAL STATUS CHANGES [None]
  - ACCIDENTAL DRUG INTAKE BY CHILD [None]
  - AGITATION [None]
  - FLUSHING [None]
  - SOMNOLENCE [None]
  - SINUS TACHYCARDIA [None]
  - MEDICATION ERROR [None]
  - ELECTROCARDIOGRAM QT PROLONGED [None]
  - OVERDOSE [None]
  - IRRITABILITY [None]
